FAERS Safety Report 25076394 (Version 2)
Quarter: 2025Q1

REPORT INFORMATION
  Report Type: Spontaneous
  Country: CA (occurrence: CA)
  Receive Date: 20250313
  Receipt Date: 20250319
  Transmission Date: 20250408
  Serious: Yes (Other)
  Sender: PFIZER
  Company Number: CA-PFIZER INC-202400304464

PATIENT
  Age: 55 Year
  Sex: Male

DRUGS (3)
  1. VELSIPITY [Suspect]
     Active Substance: ETRASIMOD ARGININE
     Indication: Colitis ulcerative
     Dosage: 2 MG, 1X/DAY
     Route: 048
     Dates: start: 20241001, end: 2025
  2. PREDNISONE [Concomitant]
     Active Substance: PREDNISONE
     Dates: start: 20240716
  3. MESALAMINE [Concomitant]
     Active Substance: MESALAMINE
     Dates: start: 202312

REACTIONS (3)
  - Colitis ulcerative [Unknown]
  - Drug ineffective [Unknown]
  - Pelvic pain [Unknown]

NARRATIVE: CASE EVENT DATE: 20240101
